FAERS Safety Report 20338016 (Version 1)
Quarter: 2022Q1

REPORT INFORMATION
  Report Type: Other
  Country: US (occurrence: None)
  Receive Date: 20220115
  Receipt Date: 20220115
  Transmission Date: 20220424
  Serious: Yes (Hospitalization, Other)
  Sender: FDA-Public Use
  Company Number: US-ROCHE-2998243

PATIENT
  Sex: Female

DRUGS (5)
  1. ACTEMRA [Suspect]
     Active Substance: TOCILIZUMAB
     Indication: Rheumatoid arthritis
     Route: 058
  2. ACTEMRA [Suspect]
     Active Substance: TOCILIZUMAB
  3. HYDROCODONE [Concomitant]
     Active Substance: HYDROCODONE
     Indication: Pain
     Dosage: ONGOING: YES
     Route: 048
     Dates: start: 2021
  4. VALACYCLOVIR [Concomitant]
     Active Substance: VALACYCLOVIR HYDROCHLORIDE
     Indication: Oral herpes
     Route: 048
     Dates: start: 2019
  5. VALACYCLOVIR [Concomitant]
     Active Substance: VALACYCLOVIR HYDROCHLORIDE
     Dosage: YES
     Route: 048
     Dates: start: 2019

REACTIONS (15)
  - Infection [Recovered/Resolved]
  - Pain [Not Recovered/Not Resolved]
  - Fall [Unknown]
  - Upper limb fracture [Recovered/Resolved]
  - Spondylolisthesis [Recovered/Resolved with Sequelae]
  - Nerve injury [Not Recovered/Not Resolved]
  - Calcinosis [Not Recovered/Not Resolved]
  - Tendon rupture [Recovered/Resolved]
  - Carpal tunnel syndrome [Not Recovered/Not Resolved]
  - Neuropathy peripheral [Not Recovered/Not Resolved]
  - Body height decreased [Not Recovered/Not Resolved]
  - Weight decreased [Unknown]
  - Rib fracture [Recovered/Resolved]
  - Thoracic vertebral fracture [Recovered/Resolved]
  - Contusion [Recovered/Resolved]

NARRATIVE: CASE EVENT DATE: 20190101
